FAERS Safety Report 8460535-1 (Version None)
Quarter: 2012Q2

REPORT INFORMATION
  Report Type: 
  Country: None (occurrence: None)
  Receive Date: 20120622
  Receipt Date: 20120613
  Transmission Date: 20120825
  Serious: No
  Sender: FDA-Public Use
  Company Number: US-ASTRAZENECA-2011SE24216

PATIENT
  Age: 77 Year
  Sex: Female

DRUGS (5)
  1. TOPROL-XL [Suspect]
     Route: 048
  2. COZAAR [Concomitant]
  3. IMDUR [Concomitant]
  4. ARIMIDEX [Suspect]
     Route: 048
  5. MAXZIDE [Concomitant]

REACTIONS (2)
  - AUTOIMMUNE DISORDER [None]
  - OSTEOPOROSIS [None]
